FAERS Safety Report 8564665-5 (Version None)
Quarter: 2012Q3

REPORT INFORMATION
  Report Type: 
  Country: None (occurrence: None)
  Receive Date: 20120803
  Receipt Date: 20120725
  Transmission Date: 20120928
  Serious: Yes (Hospitalization)
  Sender: FDA-Public Use
  Company Number: GB-BAXTER-2012BAX012851

PATIENT
  Sex: Male
  Weight: 66 kg

DRUGS (6)
  1. VON WILLEBRAND FACTOR_650 IU/VIAL_POWDER FOR SOLUTION FOR INFUSION_VIA [Suspect]
     Dosage: TOTAL VOLUME INFUSED 51.0 ML
     Route: 042
     Dates: start: 20120722, end: 20120722
  2. VON WILLEBRAND FACTOR_650 IU/VIAL_POWDER FOR SOLUTION FOR INFUSION_VIA [Suspect]
     Route: 042
     Dates: start: 20120612, end: 20120612
  3. VON WILLEBRAND FACTOR_650 IU/VIAL_POWDER FOR SOLUTION FOR INFUSION_VIA [Suspect]
     Dosage: 6.0 ML TOTAL VOLUME INFUSED
     Route: 042
     Dates: start: 20120724, end: 20120724
  4. VON WILLEBRAND FACTOR_650 IU/VIAL_POWDER FOR SOLUTION FOR INFUSION_VIA [Suspect]
     Dosage: TOTAL VOLUME INFUSED 51.0 ML
     Route: 042
     Dates: start: 20120703, end: 20120703
  5. VON WILLEBRAND FACTOR_650 IU/VIAL_POWDER FOR SOLUTION FOR INFUSION_VIA [Suspect]
     Indication: VON WILLEBRAND'S DISEASE
     Route: 042
     Dates: start: 20120625, end: 20120625
  6. VON WILLEBRAND FACTOR_650 IU/VIAL_POWDER FOR SOLUTION FOR INFUSION_VIA [Suspect]
     Dosage: TOTAL VOLUME INFUSED 51.0 ML
     Route: 042
     Dates: start: 20120713, end: 20120713

REACTIONS (2)
  - HEART RATE INCREASED [None]
  - CHEST DISCOMFORT [None]
